FAERS Safety Report 22093024 (Version 2)
Quarter: 2023Q2

REPORT INFORMATION
  Report Type: Spontaneous
  Country: US (occurrence: US)
  Receive Date: 20230314
  Receipt Date: 20230507
  Transmission Date: 20230722
  Serious: Yes (Life-Threatening, Hospitalization, Other)
  Sender: FDA-Public Use
  Company Number: None

PATIENT
  Age: 41 Year
  Sex: Female

DRUGS (5)
  1. FLUOXETINE HYDROCHLORIDE [Interacting]
     Active Substance: FLUOXETINE HYDROCHLORIDE
     Indication: Schizoaffective disorder
     Dosage: 20 MILLIGRAM/DAY
     Route: 065
  2. DILTIAZEM [Interacting]
     Active Substance: DILTIAZEM
     Indication: Hypertension
     Dosage: 180 MG TWICE/D (12 HOURS); CONTROLLED DELIVERY
     Route: 065
  3. CLOZAPINE [Interacting]
     Active Substance: CLOZAPINE
     Indication: Suicidal ideation
     Dosage: 500 MG IN DIVIDED DOSES, 100 MG ORAL IN THE MORNING AND 400 MG ORAL AT BEDTIME
     Route: 048
  4. CLOZAPINE [Interacting]
     Active Substance: CLOZAPINE
     Indication: Schizoaffective disorder
     Dosage: 500 MG IN DIVIDED DOSES, 100 MG ORAL IN THE MORNING AND 400 MG ORAL AT BEDTIME
     Route: 048
  5. CLOZAPINE [Interacting]
     Active Substance: CLOZAPINE
     Dosage: 100 MILLIGRAM, BID (RESTARTED)
     Route: 048

REACTIONS (6)
  - Ventricular extrasystoles [Recovered/Resolved]
  - Torsade de pointes [Recovered/Resolved]
  - Toxicity to various agents [Recovered/Resolved]
  - Tachycardia [Recovered/Resolved]
  - Drug interaction [Recovered/Resolved]
  - Off label use [Unknown]
